FAERS Safety Report 6032906-4 (Version None)
Quarter: 2009Q1

REPORT INFORMATION
  Report Type: 
  Country: None (occurrence: None)
  Receive Date: 20090109
  Receipt Date: 20081230
  Transmission Date: 20090719
  Serious: Yes (Other)
  Sender: FDA-Public Use
  Company Number: FR-BAYER-200910372GPV

PATIENT
  Sex: Female

DRUGS (5)
  1. NIFEDIPINE [Suspect]
     Indication: TOCOLYSIS
     Route: 048
  2. NIFEDIPINE [Suspect]
     Route: 048
  3. NIFEDIPINE [Suspect]
     Route: 060
  4. ALBUTEROL [Concomitant]
     Indication: TOCOLYSIS
     Route: 065
  5. ATOSIBAN [Concomitant]
     Indication: TOCOLYSIS
     Route: 042

REACTIONS (3)
  - DYSPNOEA [None]
  - PULMONARY OEDEMA [None]
  - RESPIRATORY FAILURE [None]
